FAERS Safety Report 9744372 (Version 1)
Quarter: 2013Q4

REPORT INFORMATION
  Report Type: Spontaneous
  Country: US (occurrence: US)
  Receive Date: 20131210
  Receipt Date: 20131210
  Transmission Date: 20140711
  Serious: Yes (Other)
  Sender: FDA-Public Use
  Company Number: CHPA2013US018045

PATIENT
  Age: 58 Year
  Sex: Male

DRUGS (5)
  1. BUCKLEY^S COUGH MIXTURE [Suspect]
     Indication: COUGH
     Dosage: 1 TSP, PRN
     Route: 048
  2. BUCKLEY^S COUGH MIXTURE [Suspect]
     Indication: NASOPHARYNGITIS
     Dosage: 1 TSP, PRN
     Route: 048
  3. BUCKLEY^S COUGH MIXTURE [Suspect]
     Indication: RHINORRHOEA
  4. BUCKLEY^S COUGH MIXTURE [Suspect]
     Indication: NASAL CONGESTION
  5. BUCKLEY^S COUGH MIXTURE [Suspect]
     Indication: OFF LABEL USE

REACTIONS (5)
  - Type 2 diabetes mellitus [Not Recovered/Not Resolved]
  - Hypertension [Not Recovered/Not Resolved]
  - Therapeutic response unexpected [Unknown]
  - Overdose [Unknown]
  - Incorrect dose administered [Unknown]
